FAERS Safety Report 5896157-6 (Version None)
Quarter: 2008Q3

REPORT INFORMATION
  Report Type: 
  Country: None (occurrence: None)
  Receive Date: 20080924
  Receipt Date: 20070410
  Transmission Date: 20090109
  Serious: Yes (Hospitalization, Other)
  Sender: FDA-Public Use
  Company Number: US-ASTRAZENECA-2007UW02167

PATIENT
  Age: 493 Month
  Sex: Male
  Weight: 154.2 kg

DRUGS (6)
  1. SEROQUEL [Suspect]
     Indication: BIPOLAR DISORDER
     Dosage: 400-650 MG
     Route: 048
     Dates: start: 20020108
  2. SEROQUEL [Suspect]
     Indication: SCHIZOPHRENIA
     Dosage: 400-650 MG
     Route: 048
     Dates: start: 20020108
  3. XENICAL [Concomitant]
     Dates: start: 20020101
  4. GEODON [Concomitant]
     Dosage: 20-160 MG
     Dates: start: 20020601
  5. HALDOL [Concomitant]
     Dates: start: 20020901
  6. RISPERDAL [Concomitant]
     Dates: start: 19990901, end: 19991001

REACTIONS (3)
  - COUGH [None]
  - DIABETIC COMA [None]
  - TYPE 2 DIABETES MELLITUS [None]
